FAERS Safety Report 9977672 (Version 1)
Quarter: 2014Q1

REPORT INFORMATION
  Report Type: Report from Study
  Country: US (occurrence: US)
  Receive Date: 20140306
  Receipt Date: 20140306
  Transmission Date: 20141002
  Serious: Yes (Other)
  Sender: FDA-Public Use
  Company Number: US-ABBVIE-13P-163-1163367-00

PATIENT
  Sex: Female

DRUGS (1)
  1. HUMIRA [Suspect]
     Indication: RHEUMATOID ARTHRITIS
     Route: 058
     Dates: end: 2010

REACTIONS (7)
  - Breast cancer [Unknown]
  - Myocardial infarction [Unknown]
  - Knee arthroplasty [Unknown]
  - Injection site mass [Unknown]
  - Diarrhoea [Unknown]
  - Myalgia [Unknown]
  - Injection site pruritus [Unknown]
